FAERS Safety Report 11687589 (Version 3)
Quarter: 2019Q3

REPORT INFORMATION
  Report Type: Spontaneous
  Country: FI (occurrence: FI)
  Receive Date: 20151030
  Receipt Date: 20190730
  Transmission Date: 20191004
  Serious: Yes (Other)
  Sender: FDA-Public Use
  Company Number: PHHY2015FI141514

PATIENT
  Sex: Male
  Weight: 2.22 kg

DRUGS (33)
  1. LEVETIRACETAM. [Suspect]
     Active Substance: LEVETIRACETAM
     Indication: FOETAL EXPOSURE DURING PREGNANCY
     Dosage: MATERNAL DOSE: 3000 MG, UNK ( 9 WEEKS)
     Route: 064
  2. LEVETIRACETAM. [Suspect]
     Active Substance: LEVETIRACETAM
     Dosage: MATERNAL DOSE: 1000 MG, UNK
     Route: 064
  3. HEPARIN [Suspect]
     Active Substance: HEPARIN SODIUM
     Indication: FOETAL EXPOSURE DURING PREGNANCY
     Dosage: UNK
     Route: 064
     Dates: start: 20120728, end: 20120729
  4. CEFTRIAXONE. [Suspect]
     Active Substance: CEFTRIAXONE
     Indication: FOETAL EXPOSURE DURING PREGNANCY
     Dosage: UNK
     Route: 064
  5. LACOSAMIDE. [Suspect]
     Active Substance: LACOSAMIDE
     Indication: FOETAL EXPOSURE DURING PREGNANCY
     Dosage: MATERNAL DOSE: 150 MG, BID
     Route: 064
     Dates: start: 201207, end: 201207
  6. PROPOFOL. [Suspect]
     Active Substance: PROPOFOL
     Indication: FOETAL EXPOSURE DURING PREGNANCY
     Dosage: UNK
     Route: 064
  7. ALBETOL [Suspect]
     Active Substance: LABETALOL HYDROCHLORIDE
     Indication: FOETAL EXPOSURE DURING PREGNANCY
     Dosage: MATERNAL DOSE: 100 MG, BID
     Route: 064
     Dates: start: 20120817, end: 20130206
  8. KLEXANE [Suspect]
     Active Substance: ENOXAPARIN
     Dosage: MATERNAL DOSE: 40 MG, BID
     Route: 064
     Dates: start: 20130206, end: 201302
  9. PRO-EPANUTIN [Suspect]
     Active Substance: FOSPHENYTOIN SODIUM
     Indication: FOETAL EXPOSURE DURING PREGNANCY
     Dosage: MATERNAL DOSE: 250 MG, BID
     Route: 064
     Dates: start: 20120729, end: 20120814
  10. LEVETIRACETAM. [Suspect]
     Active Substance: LEVETIRACETAM
     Dosage: MATERNAL DOSE: 1000 MG, BID
     Route: 064
  11. KEPPRA [Suspect]
     Active Substance: LEVETIRACETAM
     Dosage: MATERNAL DOSE: 1000 UNK (REACTION GESTATION PERIOD 9 WEEKS)
     Route: 064
  12. ENOXAPARIN [Suspect]
     Active Substance: ENOXAPARIN
     Indication: FOETAL EXPOSURE DURING PREGNANCY
     Dosage: MATERNAL DOSE: 40 MG, BID
     Route: 064
     Dates: start: 20120729
  13. SOMAC [Suspect]
     Active Substance: PANTOPRAZOLE SODIUM
     Indication: FOETAL EXPOSURE DURING PREGNANCY
     Dosage: UNK
     Route: 064
     Dates: start: 20120729, end: 20120814
  14. KLEXANE [Suspect]
     Active Substance: ENOXAPARIN
     Indication: FOETAL EXPOSURE DURING PREGNANCY
     Dosage: MATERNAL DOSE: 40 MG, BID
     Route: 064
     Dates: start: 20120729, end: 20130206
  15. LORAZEPAM. [Suspect]
     Active Substance: LORAZEPAM
     Indication: FOETAL EXPOSURE DURING PREGNANCY
     Dosage: MATERNAL DOSE: 6 MG, UNK
     Route: 064
  16. PHENYTOINE [Suspect]
     Active Substance: PHENYTOIN
     Indication: FOETAL EXPOSURE DURING PREGNANCY
     Dosage: UNK
     Route: 064
  17. TAZOCIN [Suspect]
     Active Substance: PIPERACILLIN SODIUM\TAZOBACTAM SODIUM
     Indication: FOETAL EXPOSURE DURING PREGNANCY
     Dosage: UNK
     Route: 064
  18. ATIVAN [Suspect]
     Active Substance: LORAZEPAM
     Indication: FOETAL EXPOSURE DURING PREGNANCY
     Dosage: UNK
     Route: 064
  19. OBSIDAN [PROPRANOLOL HYDROCHLORIDE] [Suspect]
     Active Substance: PROPRANOLOL HYDROCHLORIDE
     Indication: FOETAL EXPOSURE DURING PREGNANCY
     Dosage: UNK
     Route: 064
     Dates: start: 20120815, end: 20120903
  20. ENOXAPARIN [Suspect]
     Active Substance: ENOXAPARIN
     Dosage: MATERNAL DOSE: 60 MG, BID
     Route: 064
  21. KEPPRA [Suspect]
     Active Substance: LEVETIRACETAM
     Dosage: MATERNAL DOSE: 1000 MG, BID (REACTION GESTATION PERIOD 9 WEEK)
     Route: 064
     Dates: start: 20120729
  22. KEPPRA [Suspect]
     Active Substance: LEVETIRACETAM
     Indication: FOETAL EXPOSURE DURING PREGNANCY
     Dosage: MATERNAL DOSE: 3000 MG, UNK (REACTION GESTATION PERIOD 9 WEEKS)
     Route: 064
  23. KEPPRA [Suspect]
     Active Substance: LEVETIRACETAM
     Dosage: MATERNAL DOSE: (REACTION GESTATION PERIOD 9 WEEKS)
     Route: 064
  24. BIOPHILUS [Suspect]
     Active Substance: DIETARY SUPPLEMENT\PROBIOTICS
     Indication: FOETAL EXPOSURE DURING PREGNANCY
     Dosage: UNK
     Route: 064
     Dates: start: 2012, end: 20120824
  25. PRO-EPANUTIN [Suspect]
     Active Substance: FOSPHENYTOIN SODIUM
     Dosage: MATERNAL DOSE: 600 MG, UNK
     Route: 064
  26. HYDANTIN [Suspect]
     Active Substance: PHENYTOIN
     Indication: FOETAL EXPOSURE DURING PREGNANCY
     Dosage: UNK
     Route: 064
     Dates: start: 20120814, end: 20120910
  27. MIDAZOLAM [Suspect]
     Active Substance: MIDAZOLAM HYDROCHLORIDE
     Indication: FOETAL EXPOSURE DURING PREGNANCY
     Dosage: UNK
     Route: 064
  28. LEVETIRACETAM. [Suspect]
     Active Substance: LEVETIRACETAM
     Dosage: MATERNAL DOSE: UNK ( 9 WEEKS)
     Route: 064
  29. FOLVITE [Suspect]
     Active Substance: FOLIC ACID
     Indication: FOETAL EXPOSURE DURING PREGNANCY
     Dosage: MATERNAL DOSE: 4 MG, QD
     Route: 064
     Dates: start: 2012, end: 20130206
  30. AMOXIN COMP [Suspect]
     Active Substance: AMOXICILLIN\CLAVULANIC ACID
     Indication: FOETAL EXPOSURE DURING PREGNANCY
     Dosage: UNK
     Route: 064
     Dates: start: 20120820, end: 20120828
  31. LACOSAMIDE. [Suspect]
     Active Substance: LACOSAMIDE
     Dosage: MATERNAL DOSE: 100 MG, BID
     Route: 064
     Dates: start: 20120730
  32. ALBETOL [Suspect]
     Active Substance: LABETALOL HYDROCHLORIDE
     Dosage: MATERNAL DOSE: 100 MG, BID
     Route: 064
     Dates: start: 20130206, end: 201302
  33. STESOLID [Suspect]
     Active Substance: DIAZEPAM
     Indication: FOETAL EXPOSURE DURING PREGNANCY
     Dosage: MATERNAL DOSE: 10 MG, UNK
     Route: 064

REACTIONS (6)
  - Premature baby [Unknown]
  - Foetal exposure during pregnancy [Unknown]
  - Low birth weight baby [Unknown]
  - Somnolence [Unknown]
  - Feeding disorder [Unknown]
  - Exposure via breast milk [Unknown]

NARRATIVE: CASE EVENT DATE: 201207
